FAERS Safety Report 6870706-3 (Version None)
Quarter: 2010Q3

REPORT INFORMATION
  Report Type: 
  Country: None (occurrence: None)
  Receive Date: 20100723
  Receipt Date: 20100318
  Transmission Date: 20110219
  Serious: No
  Sender: FDA-Public Use
  Company Number: A0850872A

PATIENT
  Sex: Male

DRUGS (1)
  1. OLUX [Suspect]
     Indication: PRURITUS

REACTIONS (1)
  - HYPERAESTHESIA [None]
